FAERS Safety Report 5581091-1 (Version None)
Quarter: 2007Q4

REPORT INFORMATION
  Report Type: 
  Country: None (occurrence: None)
  Receive Date: 20071227
  Receipt Date: 20071212
  Transmission Date: 20080405
  Serious: Yes (Death, Other)
  Sender: FDA-Public Use
  Company Number: 2007AP001361

PATIENT
  Age: 66 Year
  Sex: Male

DRUGS (4)
  1. CIPROFLOXACIN [Suspect]
     Indication: SCROTAL ABSCESS
     Dosage: 500 MG; BID; PO
     Route: 048
     Dates: start: 20070304, end: 20070310
  2. HYDROCHLOROTHIAZIDE [Concomitant]
  3. OXYCODONE [Concomitant]
  4. PARACETAMOL [Concomitant]

REACTIONS (8)
  - ANXIETY [None]
  - BACK PAIN [None]
  - CHEST DISCOMFORT [None]
  - COMPLETED SUICIDE [None]
  - CONFUSIONAL STATE [None]
  - DEPRESSION [None]
  - GUN SHOT WOUND [None]
  - HYPERTENSION [None]
